FAERS Safety Report 5275660-6 (Version None)
Quarter: 2007Q1

REPORT INFORMATION
  Report Type: 
  Country: None (occurrence: None)
  Receive Date: 20070326
  Receipt Date: 20070316
  Transmission Date: 20070707
  Serious: Yes (Other)
  Sender: FDA-Public Use
  Company Number: IT-GLAXOSMITHKLINE-B0463014A

PATIENT

DRUGS (1)
  1. NIQUITIN CQ [Suspect]
     Route: 065

REACTIONS (1)
  - ANGINA PECTORIS [None]
